FAERS Safety Report 8833395 (Version 4)
Quarter: 2012Q4

REPORT INFORMATION
  Report Type: 
  Country: US (occurrence: US)
  Receive Date: 20121010
  Receipt Date: 20121025
  Transmission Date: 20130627
  Serious: Yes (Other)
  Sender: FDA-Public Use
  Company Number: US-JNJFOC-20121004510

PATIENT
  Age: 49 Year
  Sex: Female

DRUGS (8)
  1. XARELTO [Suspect]
     Indication: THROMBOSIS PROPHYLAXIS
     Route: 048
     Dates: end: 201209
  2. XARELTO [Suspect]
     Indication: KNEE ARTHROPLASTY
     Route: 048
     Dates: end: 201209
  3. ALBUTEROL [Concomitant]
  4. QVAR [Concomitant]
  5. RANITIDINE [Concomitant]
  6. MELOXICAM [Concomitant]
     Route: 048
  7. TRAMADOL [Concomitant]
     Route: 048
  8. FLUOXETINE [Concomitant]
     Route: 048

REACTIONS (3)
  - Haemarthrosis [Recovered/Resolved]
  - Haematocrit decreased [Unknown]
  - Nausea [Unknown]
